FAERS Safety Report 10009855 (Version 2)
Quarter: 2014Q1

REPORT INFORMATION
  Report Type: Spontaneous
  Country: US (occurrence: US)
  Receive Date: 20140312
  Receipt Date: 20140312
  Transmission Date: 20141002
  Serious: No
  Sender: FDA-Public Use
  Company Number: US-INCYTE CORPORATION-2012IN002550

PATIENT
  Age: 66 Year
  Sex: Female
  Weight: 67.5 kg

DRUGS (7)
  1. JAKAFI [Suspect]
     Indication: MYELOFIBROSIS
     Dosage: 25 MG, BID
     Route: 048
     Dates: start: 201207
  2. METFORMIN [Concomitant]
  3. JANUVIA [Concomitant]
  4. HYDROXYUREA [Concomitant]
  5. ANAGRELIDE [Concomitant]
  6. LEVEMIR [Concomitant]
  7. HUMALOG [Concomitant]

REACTIONS (2)
  - Breast tenderness [Recovering/Resolving]
  - Urinary tract infection [Recovered/Resolved]
